FAERS Safety Report 9280066 (Version 1)
Quarter: 2013Q2

REPORT INFORMATION
  Report Type: Spontaneous
  Country: BR (occurrence: BR)
  Receive Date: 20130509
  Receipt Date: 20130509
  Transmission Date: 20140414
  Serious: Yes (Other)
  Sender: FDA-Public Use
  Company Number: BR-JNJFOC-20130417381

PATIENT
  Sex: Female

DRUGS (3)
  1. XARELTO [Suspect]
     Indication: KNEE ARTHROPLASTY
     Route: 048
     Dates: start: 20130415, end: 20130416
  2. XARELTO [Suspect]
     Indication: THROMBOSIS PROPHYLAXIS
     Route: 048
     Dates: start: 20130415, end: 20130416
  3. KEFZOL [Concomitant]
     Indication: KNEE ARTHROPLASTY
     Route: 048
     Dates: start: 20130415

REACTIONS (1)
  - Epidermolysis bullosa [Not Recovered/Not Resolved]
